FAERS Safety Report 5097497-3 (Version None)
Quarter: 2006Q3

REPORT INFORMATION
  Report Type: 
  Country: None (occurrence: None)
  Receive Date: 20060901
  Receipt Date: 20060815
  Transmission Date: 20061208
  Serious: Yes (Other)
  Sender: FDA-Public Use
  Company Number: GB200608002861

PATIENT
  Age: 15 Year
  Sex: Male

DRUGS (1)
  1. STRATTERA [Suspect]
     Dosage: 45 MG, ORAL
     Route: 048
     Dates: end: 20050701

REACTIONS (2)
  - PALLOR [None]
  - RECTAL HAEMORRHAGE [None]
